FAERS Safety Report 10640616 (Version 3)
Quarter: 2016Q4

REPORT INFORMATION
  Report Type: Spontaneous
  Country: US (occurrence: US)
  Receive Date: 20141209
  Receipt Date: 20161222
  Transmission Date: 20170206
  Serious: No
  Sender: FDA-Public Use
  Company Number: US-BAUSCH-BL-2014-004660

PATIENT
  Sex: Male

DRUGS (5)
  1. XENAZINE [Suspect]
     Active Substance: TETRABENAZINE
     Route: 048
     Dates: start: 2015
  2. PROZAC [Concomitant]
     Active Substance: FLUOXETINE HYDROCHLORIDE
     Indication: DEPRESSION
  3. XENAZINE [Suspect]
     Active Substance: TETRABENAZINE
     Dosage: 2 TABLETS AT BEDTIME
     Route: 048
     Dates: start: 2014
  4. XENAZINE [Suspect]
     Active Substance: TETRABENAZINE
     Indication: HUNTINGTON^S DISEASE
     Dosage: 2 TABLETS DAILY AT BEDTIME
     Route: 048
     Dates: start: 20140707, end: 2014
  5. XENAZINE [Suspect]
     Active Substance: TETRABENAZINE
     Dosage: 3 TABLETS DAILY AT BEDTIME
     Route: 048
     Dates: start: 2014, end: 2014

REACTIONS (6)
  - Speech disorder [Not Recovered/Not Resolved]
  - Choking [Recovering/Resolving]
  - Balance disorder [Not Recovered/Not Resolved]
  - Eating disorder [Recovering/Resolving]
  - Condition aggravated [Unknown]
  - Agitation [Recovering/Resolving]

NARRATIVE: CASE EVENT DATE: 2014
